FAERS Safety Report 9628679 (Version 4)
Quarter: 2014Q1

REPORT INFORMATION
  Report Type: Report from Study
  Country: DE (occurrence: DE)
  Receive Date: 20131017
  Receipt Date: 20140319
  Transmission Date: 20141002
  Serious: Yes (Hospitalization)
  Sender: FDA-Public Use
  Company Number: DE-ROCHE-1267089

PATIENT
  Sex: Male

DRUGS (2)
  1. VEMURAFENIB [Suspect]
     Indication: METASTATIC MALIGNANT MELANOMA
     Dosage: DATE OF MOST RECENT DOSE PRIOR TO EVENT ONSET: 26/AUG/2013
     Route: 048
     Dates: start: 20130816
  2. VEMURAFENIB [Suspect]
     Dosage: DATE OF MOST RECENT DOSE PRIOR TO EVENT ONSET: 10/OCT/2013,THEN 02/DEC/2013 DOSE: 960 MG.
     Route: 048

REACTIONS (6)
  - Sepsis [Recovered/Resolved]
  - Rash [Unknown]
  - General physical health deterioration [Recovered/Resolved]
  - Nausea [Unknown]
  - Vomiting [Unknown]
  - Dizziness [Recovered/Resolved with Sequelae]
